FAERS Safety Report 17622592 (Version 3)
Quarter: 2020Q2

REPORT INFORMATION
  Report Type: Spontaneous
  Country: US (occurrence: US)
  Receive Date: 20200403
  Receipt Date: 20200507
  Transmission Date: 20200713
  Serious: Yes (Other)
  Sender: FDA-Public Use
  Company Number: US-AMNEAL PHARMACEUTICALS-2020-AMRX-00961

PATIENT
  Age: 74 Year
  Sex: Male

DRUGS (2)
  1. RYTARY [Suspect]
     Active Substance: CARBIDOPA\LEVODOPA
     Indication: PARKINSON^S DISEASE
     Dosage: 4 CAPSULES, TID
     Route: 065
     Dates: start: 201907
  2. VINCRISTINE [Interacting]
     Active Substance: VINCRISTINE
     Indication: DIFFUSE LARGE B-CELL LYMPHOMA
     Dosage: 24 HRS/ A DAY AND 5 DAYS A WEEK VIA INFUSION PUMP THEN 2 WEEKS OFF AND AGAIN START 5 ROUNDS
     Route: 065
     Dates: start: 202001

REACTIONS (3)
  - Drug interaction [Unknown]
  - Diffuse large B-cell lymphoma [Unknown]
  - Malaise [Unknown]

NARRATIVE: CASE EVENT DATE: 201912
